FAERS Safety Report 20826293 (Version 3)
Quarter: 2022Q3

REPORT INFORMATION
  Report Type: Report from Study
  Country: DE (occurrence: None)
  Receive Date: 20220513
  Receipt Date: 20220920
  Transmission Date: 20221027
  Serious: Yes (Hospitalization, Other)
  Sender: FDA-Public Use
  Company Number: 2022A177208

PATIENT
  Age: 14 Year
  Sex: Male

DRUGS (1)
  1. SELUMETINIB [Suspect]
     Active Substance: SELUMETINIB
     Indication: Neurofibroma
     Dosage: UNKNOWN DOSE
     Route: 048
     Dates: start: 20210428, end: 20210809

REACTIONS (1)
  - Retinal detachment [Unknown]
